FAERS Safety Report 7524566-8 (Version None)
Quarter: 2011Q2

REPORT INFORMATION
  Report Type: 
  Country: None (occurrence: None)
  Receive Date: 20110606
  Receipt Date: 20110527
  Transmission Date: 20111010
  Serious: Yes (Life-Threatening, Hospitalization)
  Sender: FDA-Public Use
  Company Number: IT-EISAI INC-E7389-01053-CLI-IT

PATIENT
  Sex: Male
  Weight: 70 kg

DRUGS (28)
  1. EPIRUBICIN HYDROCHLORIDE [Suspect]
     Indication: NON-SMALL CELL LUNG CANCER
     Route: 041
     Dates: start: 20101007, end: 20101028
  2. TACHIDOL [Concomitant]
     Indication: PAIN
     Route: 048
     Dates: start: 20100928, end: 20101103
  3. LEVOFLOXACIN [Concomitant]
     Indication: INFECTION PROPHYLAXIS
     Route: 048
     Dates: start: 20100928, end: 20101014
  4. ENOXAPARINA SODICA [Concomitant]
     Route: 058
     Dates: start: 20101021
  5. ENOXAPARIN SODIUM [Concomitant]
     Indication: THROMBOSIS
     Route: 058
     Dates: start: 20101028
  6. MORPHINE [Concomitant]
     Indication: PAIN
  7. OXYGEN [Concomitant]
     Route: 055
     Dates: start: 20101001, end: 20101013
  8. CO-EFFERALGAN [Concomitant]
     Indication: PAIN
     Route: 048
     Dates: start: 20100928, end: 20101103
  9. LASIX [Concomitant]
     Dates: start: 20101001, end: 20101104
  10. TRANEXAMIC ACID [Concomitant]
     Indication: PROPHYLAXIS
     Dates: start: 20101004, end: 20101006
  11. KETOROLAC TROMETHAMINE [Concomitant]
     Dates: start: 20101021, end: 20101021
  12. PEMETREXED [Suspect]
     Indication: NON-SMALL CELL LUNG CANCER
     Route: 011
     Dates: start: 20101007, end: 20101028
  13. DEXAMETHASONE SODIUM PHOSPHATE [Concomitant]
     Indication: SUPPORTIVE CARE
     Route: 048
     Dates: start: 20100928
  14. FOLINGRAV [Concomitant]
     Route: 048
     Dates: start: 20100928, end: 20101209
  15. TRANEXAMIC ACID [Concomitant]
     Route: 048
     Dates: start: 20101004, end: 20101006
  16. OMEPRAZOLE [Concomitant]
     Indication: PROPHYLAXIS
     Route: 048
     Dates: start: 20100928
  17. LORAZEPAM [Concomitant]
     Indication: PROPHYLAXIS
     Route: 048
     Dates: start: 20100928
  18. PREDNISONE [Concomitant]
     Indication: PAIN PROPHYLAXIS
     Route: 048
     Dates: start: 20100928, end: 20101021
  19. PARACETAMOLO [Concomitant]
     Indication: PAIN
     Dates: start: 20101021, end: 20101021
  20. CHLORIDRATE SERTRALINE [Concomitant]
     Indication: DEPRESSION
     Route: 048
     Dates: start: 20101028
  21. MORPHINE [Concomitant]
     Route: 058
     Dates: start: 20101002, end: 20101013
  22. SALBUTOMALO SULPHATE [Concomitant]
     Dates: start: 20100928
  23. CALCIUM CARBONATE [Concomitant]
     Indication: CALCIUM DEFICIENCY
     Route: 048
     Dates: start: 20101007, end: 20101007
  24. VOLUVEN [Concomitant]
     Indication: HYPOTENSION
     Route: 041
     Dates: start: 20101103, end: 20101103
  25. CARDIAZOL-PARACODINA [Concomitant]
     Indication: COUGH
     Route: 048
     Dates: start: 20100928, end: 20101028
  26. MYCOSTATIN [Concomitant]
     Dates: start: 20101021
  27. GRANISETRON [Concomitant]
     Route: 041
  28. RANITIDINE [Concomitant]
     Indication: PROPHYLAXIS
     Route: 041

REACTIONS (2)
  - HEPATITIS [None]
  - ABDOMINAL PAIN [None]
